FAERS Safety Report 8735505 (Version 2)
Quarter: 2012Q4

REPORT INFORMATION
  Report Type: 
  Country: JP (occurrence: JP)
  Receive Date: 20120822
  Receipt Date: 20121005
  Transmission Date: 20130627
  Serious: Yes (Other)
  Sender: FDA-Public Use
  Company Number: PHHY2012JP071643

PATIENT
  Age: 10 Year
  Sex: Male

DRUGS (2)
  1. GLIVEC [Suspect]
     Indication: CHRONIC MYELOID LEUKAEMIA TRANSFORMATION
     Route: 048
  2. ENDOXAN [Suspect]

REACTIONS (4)
  - Venoocclusive liver disease [Recovered/Resolved]
  - Acute graft versus host disease [Recovered/Resolved]
  - Viral infection [Recovered/Resolved]
  - Cytomegalovirus infection [Recovered/Resolved]
